FAERS Safety Report 4365231-8 (Version None)
Quarter: 2004Q2

REPORT INFORMATION
  Report Type: 
  Country: None (occurrence: None)
  Receive Date: 20040525
  Receipt Date: 20040401
  Transmission Date: 20050107
  Serious: No
  Sender: FDA-Public Use
  Company Number: PHEH2004US03729

PATIENT
  Age: 65 Year
  Sex: Female

DRUGS (7)
  1. ZELNORM [Suspect]
     Indication: IRRITABLE BOWEL SYNDROME
     Dosage: 6 MG, BID, ORAL
     Route: 048
     Dates: start: 20040315
  2. CALCIUM [Concomitant]
  3. MULTIVITAMINS (PANTHENOL, RETINOL) [Concomitant]
  4. LIPITOR [Concomitant]
  5. SYNTHROID [Concomitant]
  6. E-VISTA (HYDROXYZINE HYDROCHLORIDE) [Concomitant]
  7. ASPIRIN [Concomitant]

REACTIONS (3)
  - CONSTIPATION [None]
  - DRUG INEFFECTIVE [None]
  - HAEMORRHOIDS [None]
